FAERS Safety Report 9567636 (Version 1)
Quarter: 2013Q3

REPORT INFORMATION
  Report Type: Spontaneous
  Country: US (occurrence: US)
  Receive Date: 20130930
  Receipt Date: 20130930
  Transmission Date: 20140515
  Serious: No
  Sender: FDA-Public Use
  Company Number: US-AMGEN-USASP2012083128

PATIENT
  Age: 47 Year
  Sex: Female
  Weight: 108.84 kg

DRUGS (3)
  1. ENBREL [Suspect]
     Indication: PSORIATIC ARTHROPATHY
     Dosage: 50 MG, QWK
  2. MELOXICAM [Concomitant]
     Dosage: 7.5 MG, UNK
  3. FLONASE [Concomitant]
     Dosage: SPR 0.05 %

REACTIONS (2)
  - Injection site pain [Unknown]
  - Injection site bruising [Unknown]
